FAERS Safety Report 12385221 (Version 2)
Quarter: 2016Q3

REPORT INFORMATION
  Report Type: Spontaneous
  Country: US (occurrence: US)
  Receive Date: 20160519
  Receipt Date: 20160719
  Transmission Date: 20161109
  Serious: No
  Sender: FDA-Public Use
  Company Number: US-LEO PHARMA-241856

PATIENT
  Age: 51 Year
  Sex: Female

DRUGS (2)
  1. RETIN-A [Concomitant]
     Active Substance: TRETINOIN
     Indication: PRODUCT USED FOR UNKNOWN INDICATION
  2. PICATO [Suspect]
     Active Substance: INGENOL MEBUTATE
     Indication: ACTINIC KERATOSIS
     Route: 061
     Dates: start: 20160507, end: 20160509

REACTIONS (9)
  - Application site discolouration [Not Recovered/Not Resolved]
  - Application site pain [Recovered/Resolved]
  - Inappropriate schedule of drug administration [Unknown]
  - Application site burn [Recovered/Resolved]
  - Incorrect drug administration duration [Unknown]
  - Application site swelling [Recovered/Resolved]
  - Drug administered at inappropriate site [Unknown]
  - Application site vesicles [Recovered/Resolved]
  - Application site dryness [Unknown]

NARRATIVE: CASE EVENT DATE: 20160507
